FAERS Safety Report 6041807-7 (Version None)
Quarter: 2009Q1

REPORT INFORMATION
  Report Type: 
  Country: None (occurrence: None)
  Receive Date: 20090116
  Receipt Date: 20090109
  Transmission Date: 20090719
  Serious: Yes (Hospitalization)
  Sender: FDA-Public Use
  Company Number: CH-TEVA-183686ISR

PATIENT
  Age: 71 Year
  Sex: Male

DRUGS (4)
  1. FLUOROURACIL [Suspect]
     Route: 051
     Dates: start: 20050101, end: 20081101
  2. OXALIPLATIN [Suspect]
     Route: 051
     Dates: start: 20050101, end: 20081101
  3. BEVACIZUMAB [Suspect]
     Route: 051
     Dates: start: 20060101, end: 20081101
  4. LEUCOVORIN CALCIUM [Suspect]
     Route: 051
     Dates: start: 20050101, end: 20081101

REACTIONS (1)
  - INTERSTITIAL LUNG DISEASE [None]
